FAERS Safety Report 18380498 (Version 2)
Quarter: 2021Q1

REPORT INFORMATION
  Report Type: Spontaneous
  Country: US (occurrence: US)
  Receive Date: 20201013
  Receipt Date: 20210204
  Transmission Date: 20210419
  Serious: Yes (Death, Hospitalization, Other)
  Sender: FDA-Public Use
  Company Number: US-ROCHE-2692626

PATIENT
  Age: 88 Year
  Sex: Male
  Weight: 77.18 kg

DRUGS (8)
  1. XELODA [Suspect]
     Active Substance: CAPECITABINE
     Dosage: 28 DAY CYCLE; 7 DAYS ON 7 DAYS OFF ;THERAPY ONGOING: NO
     Route: 048
  2. XELODA [Suspect]
     Active Substance: CAPECITABINE
     Indication: RECTAL CANCER
     Dosage: BEGAN WITH TAKING 2000 MG TWICE DAILY FOR A 21?DAY CYCLE AND PROGRESSIVELY LOWERED DOSES
     Route: 048
     Dates: start: 201710
  3. XELODA [Suspect]
     Active Substance: CAPECITABINE
     Dosage: IN THE EVENING; 21 DAY CYCLE ;THERAPY ONGOING: NO
     Route: 048
  4. XELODA [Suspect]
     Active Substance: CAPECITABINE
     Dosage: IN THE MORNING; 21 DAY CYCLE ; THERAPY ONGOING: NO
     Route: 048
  5. XELODA [Suspect]
     Active Substance: CAPECITABINE
     Dosage: 500 MG BID (7 DAYS ON, 7 DAYS OFF)
     Route: 048
  6. TIMOLOL. [Concomitant]
     Active Substance: TIMOLOL
     Indication: GLAUCOMA
     Dosage: EACH EYE
     Route: 047
     Dates: end: 20200403
  7. XELODA [Suspect]
     Active Substance: CAPECITABINE
     Dosage: 21 DAY CYCLE ;THERAPY ONGOING: NO
     Route: 048
  8. XELODA [Suspect]
     Active Substance: CAPECITABINE
     Dosage: NEOADJUVANT WITH RADIATION; 21 DAY CYCLE ;THERAPY ONGOING: NO
     Route: 048
     Dates: start: 201709

REACTIONS (10)
  - Investigation abnormal [Unknown]
  - Atrial fibrillation [Recovered/Resolved]
  - Carcinoembryonic antigen increased [Recovered/Resolved]
  - Fatigue [Recovered/Resolved]
  - Metastases to lung [Recovered/Resolved]
  - Body height decreased [Recovered/Resolved]
  - Unevaluable event [Recovered/Resolved]
  - COVID-19 [Fatal]
  - Nausea [Recovered/Resolved]
  - Diarrhoea [Recovered/Resolved]

NARRATIVE: CASE EVENT DATE: 201709
